FAERS Safety Report 20147132 (Version 2)
Quarter: 2021Q4

REPORT INFORMATION
  Report Type: Spontaneous
  Country: US (occurrence: US)
  Receive Date: 20211203
  Receipt Date: 20211204
  Transmission Date: 20220303
  Serious: No
  Sender: FDA-Public Use
  Company Number: US-SANOFI-00864880

PATIENT
  Age: 23 Year
  Sex: Male

DRUGS (2)
  1. DUPIXENT [Suspect]
     Active Substance: DUPILUMAB
     Indication: Dermatitis atopic
     Dosage: 600 MG, 1X
     Dates: start: 202105, end: 202105
  2. DUPIXENT [Suspect]
     Active Substance: DUPILUMAB
     Dosage: 300 MG, QOW
     Dates: end: 202109

REACTIONS (2)
  - Erythema [Recovering/Resolving]
  - Dermatitis [Recovering/Resolving]

NARRATIVE: CASE EVENT DATE: 20210701
